FAERS Safety Report 12543448 (Version 1)
Quarter: 2016Q3

REPORT INFORMATION
  Report Type: Spontaneous
  Country: US (occurrence: US)
  Receive Date: 20160711
  Receipt Date: 20160711
  Transmission Date: 20161109
  Serious: Yes (Hospitalization)
  Sender: FDA-Public Use
  Company Number: US-TEVA-654638USA

PATIENT
  Sex: Female

DRUGS (1)
  1. VENLAFAXINE [Suspect]
     Active Substance: VENLAFAXINE HYDROCHLORIDE

REACTIONS (6)
  - Withdrawal syndrome [Unknown]
  - Product substitution issue [Unknown]
  - Panic attack [Unknown]
  - Anxiety [Unknown]
  - Product quality issue [Unknown]
  - Therapeutic response unexpected [Unknown]
